FAERS Safety Report 7501165-5 (Version None)
Quarter: 2011Q2

REPORT INFORMATION
  Report Type: 
  Country: None (occurrence: None)
  Receive Date: 20110524
  Receipt Date: 20100702
  Transmission Date: 20111010
  Serious: No
  Sender: FDA-Public Use
  Company Number: US-NOVEN-ALL1-2010-03709

PATIENT

DRUGS (3)
  1. DAYTRANA [Suspect]
     Dosage: 30 MG, 1X/DAY:QD
     Route: 062
     Dates: end: 20100702
  2. DAYTRANA [Suspect]
     Dosage: UNK, 1X/DAY:QD
     Route: 062
     Dates: start: 20061019
  3. MULTIPLE UNDISCLOSED MEDICATIONS [Concomitant]
     Dosage: UNK, UNKNOWN
     Route: 065

REACTIONS (3)
  - DRUG ADMINISTERED AT INAPPROPRIATE SITE [None]
  - APPLICATION SITE IRRITATION [None]
  - APPLICATION SITE DISCOLOURATION [None]
